FAERS Safety Report 7467826-1 (Version None)
Quarter: 2011Q2

REPORT INFORMATION
  Report Type: 
  Country: None (occurrence: None)
  Receive Date: 20110509
  Receipt Date: 20110110
  Transmission Date: 20111010
  Serious: No
  Sender: FDA-Public Use
  Company Number: US-ALEXION-A201100035

PATIENT
  Sex: Male

DRUGS (2)
  1. SOLIRIS [Suspect]
     Dosage: 600 MG, QW
     Route: 042
     Dates: start: 20100521, end: 20100601
  2. SOLIRIS [Suspect]
     Dosage: 900 MG, Q2W
     Dates: start: 20100625

REACTIONS (3)
  - SINUS HEADACHE [None]
  - SINUS CONGESTION [None]
  - INFLUENZA [None]
